FAERS Safety Report 19680070 (Version 1)
Quarter: 2021Q3

REPORT INFORMATION
  Report Type: Report from Study
  Country: GB (occurrence: GB)
  Receive Date: 20210810
  Receipt Date: 20210810
  Transmission Date: 20211014
  Serious: Yes (Life-Threatening, Hospitalization, Other)
  Sender: FDA-Public Use
  Company Number: GB-TEVA-2021-GB-1940302

PATIENT
  Age: 56 Year
  Sex: Male

DRUGS (6)
  1. IRINOTECAN [Suspect]
     Active Substance: IRINOTECAN
     Indication: NEUROENDOCRINE TUMOUR
     Dosage: FOURTH?LINE THERAPY
     Route: 065
  2. ELVITEGRAVIR/COBICISTAT/EMTRICITABINE/TENOFOVIR [Concomitant]
     Indication: HIV INFECTION
     Route: 065
  3. DOLUTEGRAVIR/EMTRICITABINE/TENOFOVIR [Concomitant]
     Indication: HIV INFECTION
     Route: 065
  4. CARBOPLATIN. [Suspect]
     Active Substance: CARBOPLATIN
     Indication: NEUROENDOCRINE TUMOUR
     Route: 065
  5. 5?FLUOROURACIL [Suspect]
     Active Substance: FLUOROURACIL
     Indication: NEUROENDOCRINE TUMOUR
     Route: 065
  6. STREPTOZOCIN [Suspect]
     Active Substance: STREPTOZOCIN
     Indication: NEUROENDOCRINE TUMOUR
     Route: 065

REACTIONS (3)
  - Diarrhoea [Recovering/Resolving]
  - Acute kidney injury [Recovering/Resolving]
  - CD4 lymphocytes decreased [Recovered/Resolved]
